FAERS Safety Report 13275837 (Version 1)
Quarter: 2017Q1

REPORT INFORMATION
  Report Type: Spontaneous
  Country: SG (occurrence: SG)
  Receive Date: 20170228
  Receipt Date: 20170228
  Transmission Date: 20170428
  Serious: Yes (Death, Life-Threatening, Hospitalization, Disabling, Other)
  Sender: FDA-Public Use
  Company Number: SG-ROCHE-239202

PATIENT
  Age: 62 Year
  Sex: Male
  Weight: 69 kg

DRUGS (3)
  1. PONSTAN [Concomitant]
     Active Substance: MEFENAMIC ACID
     Dosage: REPORTED AS TAKING OCCASIONALLY.
     Route: 065
  2. XENICAL [Suspect]
     Active Substance: ORLISTAT
     Indication: PRODUCT USED FOR UNKNOWN INDICATION
     Route: 048
     Dates: start: 20000515, end: 20000524
  3. PARACETAMOL [Concomitant]
     Active Substance: ACETAMINOPHEN
     Indication: PAIN
     Dosage: REPORTED AS TAKING NOT MORE THAN 8 TABLETS PER WEEK.
     Route: 048

REACTIONS (5)
  - Ear pain [Unknown]
  - Enterobacter sepsis [Fatal]
  - Pneumonia [Unknown]
  - Hepatic failure [Fatal]
  - Renal failure [Unknown]

NARRATIVE: CASE EVENT DATE: 20000523
